FAERS Safety Report 5088369-9 (Version None)
Quarter: 2006Q3

REPORT INFORMATION
  Report Type: 
  Country: None (occurrence: None)
  Receive Date: 20060822
  Receipt Date: 20060807
  Transmission Date: 20061208
  Serious: Yes (Other)
  Sender: FDA-Public Use
  Company Number: S06-BEL-01260-01

PATIENT
  Age: 16 Year
  Sex: Female

DRUGS (3)
  1. SIPRALEXA (ESCITALOPRAM) [Suspect]
     Indication: DEPRESSION
     Dosage: 10 MG QD PO
     Route: 048
  2. PAROXETINE HCL [Suspect]
     Indication: MAJOR DEPRESSION
     Dosage: 20 MG QD PO
     Route: 048
  3. SEDANXIO (PASSIFLORA INCARNATA) [Concomitant]

REACTIONS (3)
  - NAUSEA [None]
  - SCRATCH [None]
  - SELF INJURIOUS BEHAVIOUR [None]
